FAERS Safety Report 9775663 (Version 1)
Quarter: 2013Q4

REPORT INFORMATION
  Report Type: Spontaneous
  Country: CH (occurrence: CH)
  Receive Date: 20131220
  Receipt Date: 20131220
  Transmission Date: 20140711
  Serious: Yes (Other)
  Sender: FDA-Public Use
  Company Number: CH-PFIZER INC-2013363865

PATIENT
  Sex: 0

DRUGS (2)
  1. EFEXOR ER [Suspect]
     Dosage: UNK
     Route: 064
     Dates: start: 2012
  2. TRETINAC [Suspect]
     Indication: ACNE
     Dosage: 10 MG, SINGLE
     Route: 064
     Dates: start: 20121214, end: 20121214

REACTIONS (2)
  - Epidermolysis bullosa [Unknown]
  - Maternal exposure during pregnancy [Unknown]
